FAERS Safety Report 24524568 (Version 1)
Quarter: 2024Q4

REPORT INFORMATION
  Report Type: Spontaneous
  Country: US (occurrence: US)
  Receive Date: 20241019
  Receipt Date: 20241019
  Transmission Date: 20250114
  Serious: No
  Sender: NOVARTIS
  Company Number: US-002147023-NVSC2024US203584

PATIENT
  Sex: Female

DRUGS (1)
  1. MEKINIST [Suspect]
     Active Substance: TRAMETINIB DIMETHYL SULFOXIDE
     Indication: Eczema nummular
     Dosage: 5 MG, QD(ORAL SOLUTION)
     Route: 048
     Dates: start: 202409

REACTIONS (1)
  - Pyrexia [Recovered/Resolved]
